FAERS Safety Report 21492986 (Version 1)
Quarter: 2022Q4

REPORT INFORMATION
  Report Type: Spontaneous
  Country: AU (occurrence: AU)
  Receive Date: 20221021
  Receipt Date: 20221021
  Transmission Date: 20230113
  Serious: Yes (Other)
  Sender: FDA-Public Use
  Company Number: AU-NOVARTISPH-NVSC2022AU232909

PATIENT
  Sex: Female

DRUGS (5)
  1. METOPROLOL [Suspect]
     Active Substance: METOPROLOL
     Indication: Foetal exposure during pregnancy
     Dosage: MATERNAL DOSE DURING PREGNANCY: UNK
     Route: 064
  2. FUROSEMIDE [Suspect]
     Active Substance: FUROSEMIDE
     Indication: Foetal exposure during pregnancy
     Dosage: MATERNAL DOSE DURING PREGNANCY: UNK
     Route: 064
  3. ENOXAPARIN [Suspect]
     Active Substance: ENOXAPARIN
     Indication: Foetal exposure during pregnancy
     Dosage: MATERNAL DOSE DURING PREGNANCY: UNK
     Route: 064
  4. BETAMETHASONE [Suspect]
     Active Substance: BETAMETHASONE
     Indication: Foetal exposure during pregnancy
     Dosage: MATERNAL DOSE DURING PREGNANCY: UNK
     Route: 064
  5. ILOPROST [Suspect]
     Active Substance: ILOPROST
     Indication: Foetal exposure during pregnancy
     Dosage: MATERNAL DOSE DURING PREGNANCY: UNK
     Route: 064

REACTIONS (2)
  - Premature baby [Unknown]
  - Foetal exposure during pregnancy [Unknown]
